FAERS Safety Report 8459773-3 (Version None)
Quarter: 2012Q2

REPORT INFORMATION
  Report Type: 
  Country: None (occurrence: None)
  Receive Date: 20120622
  Receipt Date: 20120615
  Transmission Date: 20120825
  Serious: Yes (Other)
  Sender: FDA-Public Use
  Company Number: HR-MERCK-1206USA02807

PATIENT
  Age: 64 Year
  Sex: Male
  Weight: 90 kg

DRUGS (7)
  1. ATORVASTATIN CALCIUM [Suspect]
     Indication: HYPERCHOLESTEROLAEMIA
     Route: 048
     Dates: start: 20120221, end: 20120518
  2. ASPIRIN [Concomitant]
     Route: 065
  3. METHOTREXATE SODIUM [Concomitant]
     Route: 065
  4. TRITACE [Concomitant]
     Route: 065
  5. CARVELOL [Concomitant]
     Route: 065
  6. PREDNISONE TAB [Concomitant]
     Route: 065
  7. ZETIA [Suspect]
     Route: 048

REACTIONS (5)
  - NERVOUSNESS [None]
  - DRUG INTERACTION [None]
  - PALPITATIONS [None]
  - MUSCULOSKELETAL PAIN [None]
  - MUSCLE SPASMS [None]
